FAERS Safety Report 20135212 (Version 1)
Quarter: 2021Q4

REPORT INFORMATION
  Report Type: Spontaneous
  Country: US (occurrence: None)
  Receive Date: 20211130
  Receipt Date: 20211130
  Transmission Date: 20220304
  Serious: Yes (Other)
  Sender: FDA-Public Use
  Company Number: None

PATIENT
  Age: 63 Year
  Sex: Female
  Weight: 90 kg

DRUGS (3)
  1. BAMLANIVIMAB\ETESEVIMAB [Suspect]
     Active Substance: BAMLANIVIMAB\ETESEVIMAB
     Indication: COVID-19
     Dosage: OTHER FREQUENCY : ONCE;?
     Route: 041
  2. Acetaminophen 1000mg PO [Concomitant]
     Dates: start: 20211113, end: 20211113
  3. Ondansetron 4mg ODT PO [Concomitant]
     Dates: start: 20211113, end: 20211113

REACTIONS (3)
  - Bradycardia [None]
  - Atrial flutter [None]
  - Infusion related reaction [None]

NARRATIVE: CASE EVENT DATE: 20211113
